FAERS Safety Report 7458628-0 (Version None)
Quarter: 2011Q2

REPORT INFORMATION
  Report Type: 
  Country: None (occurrence: None)
  Receive Date: 20110504
  Receipt Date: 20110427
  Transmission Date: 20111010
  Serious: Yes (Other)
  Sender: FDA-Public Use
  Company Number: AU-PFIZER INC-2010156252

PATIENT
  Age: 64 Year
  Sex: Female

DRUGS (8)
  1. RAMIPRIL [Concomitant]
     Dosage: 10 MG, 1X/DAY
  2. OXYCONTIN [Concomitant]
     Dosage: 200 MG, 2X/DAY
  3. CARTIA XT [Concomitant]
     Dosage: UNK
  4. EFFEXOR XR [Suspect]
     Dosage: 300 MG, MANE 1X/DAY
     Route: 048
     Dates: start: 20101027
  5. LYRICA [Concomitant]
     Dosage: 75 MG, 2X/DAY
  6. LIPITOR [Concomitant]
     Dosage: 40 MG, 1X/DAY
  7. EFFEXOR XR [Suspect]
     Indication: MAJOR DEPRESSION
     Dosage: 75 MG, 1X/DAY
     Route: 048
     Dates: start: 20100801
  8. EFFEXOR XR [Suspect]
     Dosage: 225 MG, UNK
     Dates: start: 20110309, end: 20110417

REACTIONS (4)
  - DYSTONIA [None]
  - DYSPNOEA [None]
  - PRURITUS [None]
  - LARYNGOSPASM [None]
